FAERS Safety Report 13262558 (Version 2)
Quarter: 2017Q1

REPORT INFORMATION
  Report Type: Spontaneous
  Country: US (occurrence: US)
  Receive Date: 20170223
  Receipt Date: 20170228
  Transmission Date: 20170428
  Serious: Yes (Other)
  Sender: FDA-Public Use
  Company Number: US-PFIZER INC-2017072257

PATIENT

DRUGS (1)
  1. ADVIL [Suspect]
     Active Substance: IBUPROFEN
     Dosage: UNK

REACTIONS (5)
  - Chest pain [Unknown]
  - Dysphagia [Unknown]
  - Vomiting [Unknown]
  - Choking [Unknown]
  - Foreign body [Unknown]
